FAERS Safety Report 7898272 (Version 3)
Quarter: 2012Q4

REPORT INFORMATION
  Report Type: Report from Study
  Country: FR (occurrence: FR)
  Receive Date: 20110413
  Receipt Date: 20120911
  Transmission Date: 20130627
  Serious: Yes (Other)
  Sender: FDA-Public Use
  Company Number: PHHY2011FR28540

PATIENT
  Age: 49 None
  Sex: Male
  Weight: 74 kg

DRUGS (1)
  1. EVEROLIMUS [Suspect]
     Indication: METASTATIC RENAL CELL CARCINOMA
     Dosage: 10 mg/day
     Dates: start: 20110222

REACTIONS (8)
  - Skin lesion [Recovering/Resolving]
  - Folliculitis [Recovering/Resolving]
  - Staphylococcal infection [Recovering/Resolving]
  - Headache [Recovered/Resolved]
  - Aphthous stomatitis [Not Recovered/Not Resolved]
  - Thrombocytopenia [Not Recovered/Not Resolved]
  - Blood triglycerides increased [Not Recovered/Not Resolved]
  - Blood cholesterol increased [Not Recovered/Not Resolved]
